FAERS Safety Report 7531683-5 (Version None)
Quarter: 2011Q2

REPORT INFORMATION
  Report Type: 
  Country: None (occurrence: None)
  Receive Date: 20110601
  Receipt Date: 20110524
  Transmission Date: 20111010
  Serious: Yes (Hospitalization)
  Sender: FDA-Public Use
  Company Number: 1000021197

PATIENT

DRUGS (1)
  1. MILNACIPRAN (MILNACIPRAN HYDROCHLORIDE) (TABLETS) [Suspect]
     Indication: DEPRESSIVE SYMPTOM
     Dosage: 100 MG (100 MG, 1 IN 1 D), ORAL
     Route: 048
     Dates: end: 20110301

REACTIONS (1)
  - DYSTONIA [None]
